FAERS Safety Report 9531480 (Version 3)
Quarter: 2013Q4

REPORT INFORMATION
  Report Type: Spontaneous
  Country: JP (occurrence: JP)
  Receive Date: 20130918
  Receipt Date: 20131104
  Transmission Date: 20140711
  Serious: Yes (Other)
  Sender: FDA-Public Use
  Company Number: JP-UCBSA-097698

PATIENT
  Age: 57 Year
  Sex: Female

DRUGS (9)
  1. CIMZIA [Suspect]
     Indication: RHEUMATOID ARTHRITIS
     Dosage: DOSE: 200 MG SYRINGE
     Route: 058
     Dates: start: 20091016
  2. PREDNISOLONE [Suspect]
     Dosage: DAILY DOSE: 2 MG
     Route: 048
  3. LOXOPROFEN SODIUM HYDRATE [Suspect]
     Dosage: DAILY DOSE: 120 MG
     Route: 048
  4. CYTOTEC [Suspect]
     Dosage: DAILY DOSE: 200 MG
     Route: 048
  5. TALION [Suspect]
     Dosage: DAILY DOSE: 10 MG
     Route: 048
  6. TAKEPRON [Suspect]
     Dosage: DAILY DOSE: 15 MG
     Route: 048
  7. METHOTREXATE [Suspect]
     Route: 048
  8. METHOTREXATE [Suspect]
     Route: 048
  9. FOLIAMIN [Suspect]
     Route: 048

REACTIONS (1)
  - Herpes zoster [Recovered/Resolved]
